FAERS Safety Report 15480518 (Version 1)
Quarter: 2018Q4

REPORT INFORMATION
  Report Type: Spontaneous
  Country: JP (occurrence: JP)
  Receive Date: 20181010
  Receipt Date: 20181010
  Transmission Date: 20190205
  Serious: Yes (Other)
  Sender: FDA-Public Use
  Company Number: JP-EDENBRIDGE PHARMACEUTICALS, LLC-JP-2018EDE000291

PATIENT

DRUGS (5)
  1. PREDNISOLONE SODIUM PHOSPHATE. [Suspect]
     Active Substance: PREDNISOLONE SODIUM PHOSPHATE
     Dosage: 1 MG/KG, (PER 2 DAYS)
     Route: 048
  2. MIZORIBINE [Suspect]
     Active Substance: MIZORIBINE
     Indication: IGA NEPHROPATHY
     Dosage: 4 MG/KG, QD (TWO DIVIDED DOSES)
  3. PREDNISOLONE SODIUM PHOSPHATE. [Suspect]
     Active Substance: PREDNISOLONE SODIUM PHOSPHATE
     Indication: IGA NEPHROPATHY
     Dosage: 2 MG/KG, QD, (THREE DIVIDED DOSES)
     Route: 048
  4. PREDNISOLONE SODIUM PHOSPHATE. [Suspect]
     Active Substance: PREDNISOLONE SODIUM PHOSPHATE
     Dosage: 2 MG/KG, QOD (AS A SINGLE DOSE IN THE MORNING)
     Route: 048
  5. PREDNISOLONE SODIUM PHOSPHATE. [Suspect]
     Active Substance: PREDNISOLONE SODIUM PHOSPHATE
     Dosage: 1.5 MG/KG, (PER 2 DAYS)
     Route: 048

REACTIONS (1)
  - Substance-induced psychotic disorder [Recovering/Resolving]
